FAERS Safety Report 8827767 (Version 1)
Quarter: 2012Q4

REPORT INFORMATION
  Report Type: 
  Country: CN (occurrence: CN)
  Receive Date: 20121005
  Receipt Date: 20121005
  Transmission Date: 20130627
  Serious: Yes (Other)
  Sender: FDA-Public Use
  Company Number: CN-JNJFOC-20120912986

PATIENT
  Sex: Male

DRUGS (2)
  1. TYLENOL [Suspect]
     Indication: PYREXIA
     Dosage: 650mg/ tablet, 2 tablets
     Route: 048
     Dates: start: 20100606, end: 20100607
  2. TYLENOL [Suspect]
     Route: 048

REACTIONS (1)
  - White blood cell count decreased [Recovered/Resolved]
